FAERS Safety Report 19294852 (Version 2)
Quarter: 2022Q2

REPORT INFORMATION
  Report Type: Spontaneous
  Country: US (occurrence: US)
  Receive Date: 20210524
  Receipt Date: 20220419
  Transmission Date: 20220720
  Serious: No
  Sender: FDA-Public Use
  Company Number: US-PFIZER INC-2021226493

PATIENT
  Age: 80 Year
  Sex: Male
  Weight: 70.295 kg

DRUGS (1)
  1. GABAPENTIN [Suspect]
     Active Substance: GABAPENTIN
     Indication: Neuropathy peripheral
     Dosage: UNK

REACTIONS (2)
  - Burning sensation [Unknown]
  - Off label use [Unknown]
